FAERS Safety Report 11744768 (Version 7)
Quarter: 2017Q1

REPORT INFORMATION
  Report Type: Report from Study
  Country: IL (occurrence: IL)
  Receive Date: 20151116
  Receipt Date: 20170124
  Transmission Date: 20170428
  Serious: Yes (Hospitalization, Other)
  Sender: FDA-Public Use
  Company Number: DE-ACTELION-A-US2015-127335

PATIENT
  Age: 44 Year
  Sex: Female

DRUGS (4)
  1. REVATIO [Concomitant]
     Active Substance: SILDENAFIL CITRATE
     Dosage: UNK
  2. FUSID [Concomitant]
     Active Substance: FUROSEMIDE
     Dosage: UNK
  3. VENTAVIS [Suspect]
     Active Substance: ILOPROST
     Indication: PULMONARY HYPERTENSION
     Dosage: 5 MCG, 6ID
     Route: 055
     Dates: start: 20090201
  4. NEXIUM [Concomitant]
     Active Substance: ESOMEPRAZOLE MAGNESIUM
     Dosage: UNK

REACTIONS (6)
  - Internal haemorrhage [Recovering/Resolving]
  - Pulmonary hypertension [Recovering/Resolving]
  - Therapeutic response decreased [Recovering/Resolving]
  - General physical health deterioration [Recovering/Resolving]
  - Haemorrhagic anaemia [Recovering/Resolving]
  - Respiratory disorder [Recovering/Resolving]
